FAERS Safety Report 5873137-8 (Version None)
Quarter: 2008Q3

REPORT INFORMATION
  Report Type: 
  Country: None (occurrence: None)
  Receive Date: 20080908
  Receipt Date: 20080828
  Transmission Date: 20090109
  Serious: Yes (Hospitalization)
  Sender: FDA-Public Use
  Company Number: CN-JNJFOC-20080806559

PATIENT
  Sex: Male
  Weight: 74 kg

DRUGS (1)
  1. PALIPERIDONE [Suspect]
     Indication: SCHIZOPHRENIA
     Route: 048

REACTIONS (4)
  - EYE ROLLING [None]
  - INTENTIONAL SELF-INJURY [None]
  - MUSCLE TIGHTNESS [None]
  - OVERDOSE [None]
